FAERS Safety Report 7782046-9 (Version None)
Quarter: 2011Q3

REPORT INFORMATION
  Report Type: 
  Country: None (occurrence: None)
  Receive Date: 20110927
  Receipt Date: 20110926
  Transmission Date: 20111222
  Serious: Yes (Other)
  Sender: FDA-Public Use
  Company Number: US-PFIZER INC-2011229351

PATIENT
  Sex: Male
  Weight: 161.5 kg

DRUGS (6)
  1. CHANTIX [Suspect]
     Dosage: 1 MG, 2X/DAY
     Dates: start: 20110801
  2. VERAPAMIL [Concomitant]
     Indication: HYPERTENSION
     Dosage: UNK
  3. OXYCODONE [Concomitant]
     Indication: BACK PAIN
     Dosage: UNK
  4. COZAAR [Concomitant]
     Indication: HYPERTENSION
     Dosage: UNK
  5. CHANTIX [Suspect]
     Indication: SMOKING CESSATION THERAPY
     Dosage: 0.5 MG, 1X/DAY
     Route: 048
     Dates: start: 20110801, end: 20110801
  6. PERCOCET [Concomitant]
     Indication: BACK PAIN
     Dosage: UNK

REACTIONS (8)
  - DISTURBANCE IN ATTENTION [None]
  - DYSPNOEA [None]
  - HEART RATE DECREASED [None]
  - DEPRESSED MOOD [None]
  - THINKING ABNORMAL [None]
  - ANXIETY [None]
  - WITHDRAWAL SYNDROME [None]
  - ANGER [None]
